FAERS Safety Report 14003622 (Version 2)
Quarter: 2017Q4

REPORT INFORMATION
  Report Type: Spontaneous
  Country: US (occurrence: US)
  Receive Date: 20170922
  Receipt Date: 20171123
  Transmission Date: 20180321
  Serious: No
  Sender: FDA-Public Use
  Company Number: US-JNJFOC-20170824031

PATIENT
  Age: 62 Year
  Sex: Female
  Weight: 87.54 kg

DRUGS (11)
  1. FLUCONAZOLE. [Concomitant]
     Active Substance: FLUCONAZOLE
     Indication: PROPHYLAXIS
     Route: 065
     Dates: start: 201612
  2. BABY ASPIRIN [Concomitant]
     Active Substance: ASPIRIN
     Dosage: EVERY MORNING
     Route: 065
  3. TRAMADOL. [Concomitant]
     Active Substance: TRAMADOL
     Indication: PAIN
     Route: 048
     Dates: start: 2015
  4. ACETYLSALICYLIC ACID [Concomitant]
     Active Substance: ASPIRIN
     Indication: PROPHYLAXIS
     Dosage: EARLY MORNING
     Route: 048
     Dates: start: 2003
  5. LISINOPRIL. [Concomitant]
     Active Substance: LISINOPRIL
     Indication: HYPERTENSION
     Dosage: EVERY MORNING
     Route: 048
  6. KEFLEX [Concomitant]
     Active Substance: CEPHALEXIN
     Indication: STAPHYLOCOCCAL INFECTION
     Route: 065
     Dates: start: 201612
  7. CELEXA [Concomitant]
     Active Substance: CITALOPRAM HYDROBROMIDE
     Indication: DEPRESSION
     Dosage: EVERY MORNING
     Route: 048
     Dates: start: 2011
  8. MOTRIN [Concomitant]
     Active Substance: IBUPROFEN
     Indication: PAIN
     Route: 048
  9. TYLENOL [Concomitant]
     Active Substance: ACETAMINOPHEN
     Indication: PAIN
     Route: 048
  10. INVOKANA [Suspect]
     Active Substance: CANAGLIFLOZIN
     Indication: DIABETES MELLITUS
     Route: 048
     Dates: start: 20170614, end: 20170820
  11. GABAPENTIN. [Concomitant]
     Active Substance: GABAPENTIN
     Indication: POOR QUALITY SLEEP
     Route: 048
     Dates: start: 2014

REACTIONS (18)
  - Dizziness [Not Recovered/Not Resolved]
  - Skin ulcer [Recovering/Resolving]
  - Skin discolouration [Recovering/Resolving]
  - Blood potassium decreased [Recovering/Resolving]
  - Blood chloride decreased [Unknown]
  - Asthenia [Recovering/Resolving]
  - Nausea [Recovering/Resolving]
  - Hot flush [Recovering/Resolving]
  - Blood sodium decreased [Unknown]
  - Urine analysis abnormal [Recovering/Resolving]
  - Vulvovaginal mycotic infection [Recovering/Resolving]
  - Dyspnoea [Recovering/Resolving]
  - Headache [Recovering/Resolving]
  - Abdominal pain upper [Unknown]
  - Muscle spasms [Recovering/Resolving]
  - Palpitations [Recovering/Resolving]
  - Hyperhidrosis [Not Recovered/Not Resolved]
  - Abnormal loss of weight [Unknown]

NARRATIVE: CASE EVENT DATE: 20170614
